FAERS Safety Report 12206978 (Version 1)
Quarter: 2016Q1

REPORT INFORMATION
  Report Type: Spontaneous
  Country: US (occurrence: None)
  Receive Date: 20160323
  Receipt Date: 20160323
  Transmission Date: 20160526
  Serious: Yes (Other)
  Sender: FDA-Public Use
  Company Number: None

PATIENT
  Age: 48 Year
  Sex: Male

DRUGS (12)
  1. NEOMYCIN [Concomitant]
     Active Substance: NEOMYCIN
  2. SMZ-TMP [Concomitant]
     Active Substance: SULFAMETHOXAZOLE\TRIMETHOPRIM
  3. EFFER-K [Concomitant]
  4. PREDNISONE. [Concomitant]
     Active Substance: PREDNISONE
  5. FLUTICASONE NS [Concomitant]
  6. XIFAXAN [Concomitant]
     Active Substance: RIFAXIMIN
  7. ACTEMRA [Suspect]
     Active Substance: TOCILIZUMAB
     Indication: RHEUMATOID ARTHRITIS
     Dosage: 1 INJECTIOIN EVERY WEEK SUBCUTANEOUS
     Route: 058
     Dates: start: 20160310, end: 20160321
  8. CREON [Concomitant]
     Active Substance: PANCRELIPASE AMYLASE\PANCRELIPASE LIPASE\PANCRELIPASE PROTEASE
  9. MUPIROCIN OINTMENT [Concomitant]
     Active Substance: MUPIROCIN
  10. PANTOPRAZOLE [Concomitant]
     Active Substance: PANTOPRAZOLE SODIUM
  11. BUPROPION. [Concomitant]
     Active Substance: BUPROPION
  12. NYSTATIN. [Concomitant]
     Active Substance: NYSTATIN

REACTIONS (7)
  - Paraesthesia [None]
  - Feeling abnormal [None]
  - Burning sensation [None]
  - Anxiety [None]
  - Condition aggravated [None]
  - Inflammation [None]
  - Cognitive disorder [None]

NARRATIVE: CASE EVENT DATE: 20160321
